FAERS Safety Report 8900600 (Version 1)
Quarter: 2012Q4

REPORT INFORMATION
  Report Type: 
  Country: CA (occurrence: CA)
  Receive Date: 20121109
  Receipt Date: 20121109
  Transmission Date: 20130627
  Serious: Yes (Other)
  Sender: FDA-Public Use
  Company Number: PHMT2005CA00734

PATIENT
  Sex: Female

DRUGS (4)
  1. SANDOSTATIN LAR [Suspect]
     Indication: ACROMEGALY
     Dosage: 20 mg, every 4 weeks
     Dates: start: 20051129
  2. SANDOSTATIN [Suspect]
     Indication: ACROMEGALY
     Dates: start: 20051014
  3. METFORMIN [Concomitant]
  4. NOVOLIN [Concomitant]

REACTIONS (6)
  - Hypotension [Unknown]
  - Hypoglycaemia [Unknown]
  - Diarrhoea [Unknown]
  - Abdominal pain [Unknown]
  - Blood glucose increased [Unknown]
  - Nausea [Unknown]
